FAERS Safety Report 10086093 (Version 1)
Quarter: 2014Q2

REPORT INFORMATION
  Report Type: Spontaneous
  Country: IT (occurrence: IT)
  Receive Date: 20140418
  Receipt Date: 20140418
  Transmission Date: 20141212
  Serious: Yes (Other)
  Sender: FDA-Public Use
  Company Number: IT-ASTRAZENECA-2014SE25401

PATIENT
  Age: 28904 Day
  Sex: Female

DRUGS (7)
  1. SEROQUEL [Suspect]
     Indication: ABNORMAL BEHAVIOUR
     Route: 048
     Dates: start: 20140324, end: 20140331
  2. TALOFEN [Concomitant]
     Dosage: 4G/100ML, UNKNOWN
     Route: 048
  3. GARDENALE [Concomitant]
  4. TENORMIN [Concomitant]
  5. KROVANEG [Concomitant]
  6. EUTIROX [Concomitant]
  7. ISOPTIN [Concomitant]

REACTIONS (1)
  - Toxic skin eruption [Recovered/Resolved]
